FAERS Safety Report 23626348 (Version 1)
Quarter: 2024Q1

REPORT INFORMATION
  Report Type: Spontaneous
  Country: US (occurrence: None)
  Receive Date: 20240312
  Receipt Date: 20240312
  Transmission Date: 20240409
  Serious: Yes (Other)
  Sender: FDA-Public Use
  Company Number: None

PATIENT
  Sex: Male

DRUGS (2)
  1. LENALIDOMIDE [Suspect]
     Active Substance: LENALIDOMIDE
     Route: 048
     Dates: start: 202402
  2. PREVACID [Concomitant]

REACTIONS (4)
  - Gastrooesophageal reflux disease [None]
  - Joint swelling [None]
  - Peripheral swelling [None]
  - Balance disorder [None]
